FAERS Safety Report 6231482-0 (Version None)
Quarter: 2009Q2

REPORT INFORMATION
  Report Type: 
  Country: None (occurrence: None)
  Receive Date: 20090616
  Receipt Date: 20090608
  Transmission Date: 20091009
  Serious: Yes (Other)
  Sender: FDA-Public Use
  Company Number: A0786513A

PATIENT
  Sex: Male

DRUGS (3)
  1. VERAMYST [Suspect]
     Indication: DRUG USE FOR UNKNOWN INDICATION
     Route: 065
  2. KALETRA [Suspect]
     Indication: DRUG USE FOR UNKNOWN INDICATION
  3. ANTIBIOTICS [Suspect]

REACTIONS (6)
  - BLINDNESS UNILATERAL [None]
  - DRUG INTERACTION [None]
  - EYE DISORDER [None]
  - SENSORY DISTURBANCE [None]
  - SINUS CONGESTION [None]
  - VISION BLURRED [None]
